APPROVED DRUG PRODUCT: GABAPENTIN
Active Ingredient: GABAPENTIN
Strength: 300MG
Dosage Form/Route: CAPSULE;ORAL
Application: A090158 | Product #002
Applicant: PHARMOBEDIENT CONSULTING LLC
Approved: Feb 14, 2011 | RLD: No | RS: No | Type: DISCN